FAERS Safety Report 9982826 (Version 1)
Quarter: 2014Q1

REPORT INFORMATION
  Report Type: Spontaneous
  Country: US (occurrence: None)
  Receive Date: 20140306
  Receipt Date: 20140306
  Transmission Date: 20141002
  Serious: Yes (Other)
  Sender: FDA-Public Use
  Company Number: None

PATIENT
  Age: 75 Year
  Sex: Male

DRUGS (3)
  1. METOPROLOL ER 50MG LEGACY [Suspect]
     Indication: PRODUCT USED FOR UNKNOWN INDICATION
     Dosage: 1 TABLET, QD, ORAL
     Route: 048
  2. LIPITOR [Concomitant]
  3. COUMADIN [Concomitant]

REACTIONS (3)
  - Cardiac flutter [None]
  - Heart rate increased [None]
  - Product substitution issue [None]
